FAERS Safety Report 5960098-6 (Version None)
Quarter: 2008Q4

REPORT INFORMATION
  Report Type: 
  Country: None (occurrence: None)
  Receive Date: 20081110
  Receipt Date: 20080818
  Transmission Date: 20090506
  Serious: No
  Sender: FDA-Public Use
  Company Number: 2008US002072

PATIENT
  Sex: Male

DRUGS (11)
  1. LEXISCAN [Suspect]
     Indication: CARDIAC STRESS TEST
     Dates: start: 20080804
  2. DOCUSATE (DOCUSATE) [Concomitant]
  3. METOPROLOL TARTRATE [Concomitant]
  4. AMLODIPINE [Concomitant]
  5. LORAZEPAM [Concomitant]
  6. ALBUTEROL (SALBUTAMOL SULFATE) [Concomitant]
  7. CLONIDINE [Concomitant]
  8. OMEPRAZOLE [Concomitant]
  9. HYDROCODONE W/ACETAMINOPHEN (HYDROCODONE BITARTRATE) [Concomitant]
  10. TIMOLOL MALEATE [Concomitant]
  11. TRAVOPROST (TRAVOPROST) [Concomitant]

REACTIONS (2)
  - NAUSEA [None]
  - VOMITING [None]
